FAERS Safety Report 4795831-2 (Version None)
Quarter: 2005Q4

REPORT INFORMATION
  Report Type: 
  Country: None (occurrence: None)
  Receive Date: 20051007
  Receipt Date: 20050923
  Transmission Date: 20060501
  Serious: Yes (Other)
  Sender: FDA-Public Use
  Company Number: 2005133502

PATIENT
  Age: 82 Year
  Sex: Male
  Weight: 68.0396 kg

DRUGS (2)
  1. NICOTROL [Suspect]
     Indication: SMOKING CESSATION THERAPY
     Dosage: INHALATION
     Route: 055
     Dates: start: 20050901
  2. METOPROLOL TARTRATE [Concomitant]

REACTIONS (5)
  - BLOOD PRESSURE ABNORMAL [None]
  - DIZZINESS [None]
  - FALL [None]
  - LOSS OF CONSCIOUSNESS [None]
  - NAUSEA [None]
